FAERS Safety Report 9041470 (Version 1)
Quarter: 2013Q1

REPORT INFORMATION
  Report Type: Spontaneous
  Country: US (occurrence: None)
  Receive Date: 20130114
  Receipt Date: 20130114
  Transmission Date: 20140127
  Serious: Yes (Death)
  Sender: FDA-Public Use
  Company Number: AUR-APL-2013-00144

PATIENT
  Age: 48 Year
  Sex: Female

DRUGS (4)
  1. CITALOPRAM (CITALOPRAM) [Suspect]
     Indication: PRODUCT USED FOR UNKNOWN INDICATION
  2. ACETAMINOPHEN/ HYDROCODONE [Suspect]
     Route: 048
  3. METHAMPHETAMINE [Suspect]
  4. AMITRIPTYLINE (AMITRIPTYLINE) [Suspect]

REACTIONS (1)
  - Drug abuse [None]
